FAERS Safety Report 7565151-1 (Version None)
Quarter: 2011Q2

REPORT INFORMATION
  Report Type: 
  Country: None (occurrence: None)
  Receive Date: 20110622
  Receipt Date: 20110620
  Transmission Date: 20111010
  Serious: Yes (Life-Threatening, Hospitalization)
  Sender: FDA-Public Use
  Company Number: JP-B.I. PHARMACEUTICALS,INC./RIDGEFIELD-2011-BP-10791NB

PATIENT
  Sex: Female
  Weight: 38.3 kg

DRUGS (9)
  1. ARICEPT [Concomitant]
     Indication: DEMENTIA
     Dosage: 5 MG
     Route: 048
     Dates: start: 20110108
  2. LASIX [Concomitant]
     Dosage: 40 MG
     Route: 048
     Dates: start: 20110413
  3. ALDACTONE [Concomitant]
     Indication: OEDEMA
     Dosage: 25 MG
     Route: 048
     Dates: start: 20100622
  4. LASIX [Concomitant]
     Indication: CARDIAC FAILURE
     Dosage: 40 MG
     Route: 042
     Dates: start: 20110407, end: 20110411
  5. LANSOPRAZOLE [Concomitant]
     Indication: GASTRITIS PROPHYLAXIS
     Dosage: 15 MG
     Route: 048
     Dates: start: 20100813
  6. ALPROSTADIL [Concomitant]
     Indication: SKIN ULCER
     Route: 062
     Dates: start: 20110331
  7. PRADAXA [Suspect]
     Indication: ATRIAL FIBRILLATION
     Dosage: 220 MG
     Route: 048
     Dates: start: 20110407, end: 20110415
  8. CARVEDILOL [Concomitant]
     Indication: CARDIAC FAILURE
     Dosage: 2.5 MG
     Route: 048
     Dates: start: 20110108
  9. PRORENAL [Concomitant]
     Indication: ARTERIAL OCCLUSIVE DISEASE
     Dosage: 30 MG
     Route: 048
     Dates: start: 20110107

REACTIONS (3)
  - FALL [None]
  - WHITE BLOOD CELL COUNT DECREASED [None]
  - NAUSEA [None]
